FAERS Safety Report 20676159 (Version 1)
Quarter: 2022Q2

REPORT INFORMATION
  Report Type: Spontaneous
  Country: US (occurrence: US)
  Receive Date: 20220405
  Receipt Date: 20220405
  Transmission Date: 20220721
  Serious: No
  Sender: FDA-Public Use
  Company Number: US-BoehringerIngelheim-2022-BI-163568

PATIENT
  Age: 74 Year
  Sex: Female

DRUGS (2)
  1. SPIRIVA RESPIMAT [Suspect]
     Active Substance: TIOTROPIUM BROMIDE
     Indication: Asthma
     Dosage: 2 PUFFS
  2. SPIRIVA RESPIMAT [Suspect]
     Active Substance: TIOTROPIUM BROMIDE
     Dosage: 4 PUFFS

REACTIONS (2)
  - Off label use [Unknown]
  - Overdose [Unknown]

NARRATIVE: CASE EVENT DATE: 20220101
